FAERS Safety Report 5449944-2 (Version None)
Quarter: 2007Q3

REPORT INFORMATION
  Report Type: 
  Country: None (occurrence: None)
  Receive Date: 20070803
  Receipt Date: 20070522
  Transmission Date: 20080115
  Serious: No
  Sender: FDA-Public Use
  Company Number: 200616619BWH

PATIENT
  Age: 42 Year
  Sex: Male

DRUGS (11)
  1. NEXAVAR [Suspect]
     Indication: ADENOID CYSTIC CARCINOMA
     Dosage: SEE IMAGE
     Route: 048
     Dates: start: 20061101
  2. PREDNISONE [Concomitant]
  3. PRILOSEC [Concomitant]
  4. LYRICA [Concomitant]
  5. COUMADIN [Concomitant]
  6. CELEBREX [Concomitant]
  7. CELEXA [Concomitant]
  8. ELAVIL [Concomitant]
  9. LIPITOR [Concomitant]
  10. CISPLATIN [Concomitant]
  11. NAVELBINE [Concomitant]

REACTIONS (6)
  - ALOPECIA [None]
  - BLISTER [None]
  - DRY EYE [None]
  - DRY MOUTH [None]
  - GAIT DISTURBANCE [None]
  - SENSORY LOSS [None]
